FAERS Safety Report 18539920 (Version 3)
Quarter: 2021Q1

REPORT INFORMATION
  Report Type: Spontaneous
  Country: US (occurrence: US)
  Receive Date: 20201124
  Receipt Date: 20210105
  Transmission Date: 20210419
  Serious: Yes (Death, Hospitalization)
  Sender: FDA-Public Use
  Company Number: US-PFIZER INC-2020462692

PATIENT
  Age: 62 Year
  Sex: Male

DRUGS (1)
  1. SUTENT [Suspect]
     Active Substance: SUNITINIB MALATE
     Dosage: UNK

REACTIONS (6)
  - Malnutrition [Unknown]
  - Abdominal distension [Unknown]
  - Death [Fatal]
  - Eating disorder [Unknown]
  - Neoplasm progression [Unknown]
  - Expired product administered [Unknown]

NARRATIVE: CASE EVENT DATE: 20201205
